FAERS Safety Report 20908038 (Version 1)
Quarter: 2022Q2

REPORT INFORMATION
  Report Type: Other
  Country: US (occurrence: None)
  Receive Date: 20220602
  Receipt Date: 20220602
  Transmission Date: 20220721
  Serious: No
  Sender: FDA-Public Use
  Company Number: US-ROCHE-2952825

PATIENT
  Sex: Female

DRUGS (24)
  1. OCREVUS [Suspect]
     Active Substance: OCRELIZUMAB
     Indication: Relapsing-remitting multiple sclerosis
     Dosage: ON DAY 1 AND 15 THEN 600 MG EVERY 6 MONTHS
     Route: 042
     Dates: start: 202003
  2. CLONAZEPAM [Suspect]
     Active Substance: CLONAZEPAM
     Indication: Ill-defined disorder
     Dosage: DOSE PROVIDED AS THREE 0.5 MG TABLETS AT NIGHT
     Route: 048
  3. FASENRA [Concomitant]
     Active Substance: BENRALIZUMAB
     Indication: Asthma
     Dosage: INJECT 1 SYRINGE UNDER THE SKIN
     Route: 058
  4. GABAPENTIN [Concomitant]
     Active Substance: GABAPENTIN
     Indication: Pain
     Route: 048
  5. HYDROXYCHLOROQUINE [Concomitant]
     Active Substance: HYDROXYCHLOROQUINE
     Indication: COVID-19
     Dosage: YES
     Route: 048
  6. SINGULAIR [Concomitant]
     Active Substance: MONTELUKAST SODIUM
  7. SPIRIVA RESPIMAT [Concomitant]
     Active Substance: TIOTROPIUM BROMIDE
     Dosage: 1 PUFF DAILY ;ONGOING: YES
     Route: 055
  8. TRAZODONE [Concomitant]
     Active Substance: TRAZODONE HYDROCHLORIDE
     Indication: Insomnia
     Dosage: YES
     Route: 048
  9. ZINC [Concomitant]
     Active Substance: ZINC
     Dosage: UNKNOWN FREQUENCY BUT IS NOT DAILY ;ONGOING: YES
     Route: 048
  10. BACLOFEN [Concomitant]
     Active Substance: BACLOFEN
     Dosage: YES
     Route: 048
  11. BIOTIN [Concomitant]
     Active Substance: BIOTIN
     Dosage: 5,000 UNITS DAILY ;ONGOING: YES
     Route: 048
  12. SYMBICORT [Concomitant]
     Active Substance: BUDESONIDE\FORMOTEROL FUMARATE DIHYDRATE
     Dosage: YES
     Route: 055
  13. NUCALA [Concomitant]
     Active Substance: MEPOLIZUMAB
  14. PROAIR HFA [Concomitant]
     Active Substance: ALBUTEROL SULFATE
  15. RANITIDINE [Concomitant]
     Active Substance: RANITIDINE
  16. SUMATRIPTAN [Concomitant]
     Active Substance: SUMATRIPTAN
  17. MONTELUKAST [Concomitant]
     Active Substance: MONTELUKAST SODIUM
  18. FLUTICASONE [Concomitant]
     Active Substance: FLUTICASONE
  19. ESTRADIOL [Concomitant]
     Active Substance: ESTRADIOL
  20. DULERA [Concomitant]
     Active Substance: FORMOTEROL FUMARATE DIHYDRATE\MOMETASONE FUROATE
  21. CHOLECALCIFEROL [Concomitant]
     Active Substance: CHOLECALCIFEROL
  22. AMLODIPINE [Concomitant]
     Active Substance: AMLODIPINE BESYLATE
  23. ASPIRIN [Concomitant]
     Active Substance: ASPIRIN
  24. ACYCLOVIR [Concomitant]
     Active Substance: ACYCLOVIR

REACTIONS (8)
  - Gait inability [Recovered/Resolved]
  - Weight decreased [Recovering/Resolving]
  - Chronic obstructive pulmonary disease [Unknown]
  - Alopecia [Recovered/Resolved]
  - Herpes virus infection [Not Recovered/Not Resolved]
  - Weight gain poor [Not Recovered/Not Resolved]
  - Anaemia [Not Recovered/Not Resolved]
  - Speech disorder [Not Recovered/Not Resolved]

NARRATIVE: CASE EVENT DATE: 20210101
